FAERS Safety Report 8459384 (Version 2)
Quarter: 2012Q4

REPORT INFORMATION
  Report Type: 
  Country: US (occurrence: US)
  Receive Date: 20120314
  Receipt Date: 20121024
  Transmission Date: 20130627
  Serious: No
  Sender: FDA-Public Use
  Company Number: US-ASTRAZENECA-2011SE22116

PATIENT
  Age: 51 Year
  Sex: Female
  Weight: 57.2 kg

DRUGS (8)
  1. TOPROL XL [Suspect]
     Indication: SUPRAVENTRICULAR TACHYCARDIA
     Route: 048
  2. TOPROL XL [Suspect]
     Indication: ARRHYTHMIA
     Route: 048
  3. TOPROL XL [Suspect]
     Indication: SUPRAVENTRICULAR TACHYCARDIA
     Route: 048
     Dates: start: 2006, end: 201103
  4. TOPROL XL [Suspect]
     Indication: ARRHYTHMIA
     Route: 048
     Dates: start: 2006, end: 201103
  5. BABY ASPIRIN [Concomitant]
  6. DIGOXIN [Concomitant]
  7. SUPPLEMENT [Concomitant]
  8. ATIVAN [Concomitant]

REACTIONS (16)
  - Weight decreased [Unknown]
  - Gait disturbance [Unknown]
  - Speech disorder [Unknown]
  - Hypertension [Not Recovered/Not Resolved]
  - Hypoaesthesia oral [Unknown]
  - Hypoaesthesia [Unknown]
  - Hypoaesthesia oral [Unknown]
  - Mental impairment [Unknown]
  - Raynaud^s phenomenon [Unknown]
  - Weight increased [Unknown]
  - Blood pressure decreased [Unknown]
  - Sensation of heaviness [Unknown]
  - Balance disorder [Unknown]
  - Headache [Unknown]
  - Off label use [Unknown]
  - Off label use [Unknown]
